FAERS Safety Report 10266226 (Version 1)
Quarter: 2014Q2

REPORT INFORMATION
  Report Type: Spontaneous
  Country: US (occurrence: US)
  Receive Date: 20140627
  Receipt Date: 20140627
  Transmission Date: 20141212
  Serious: No
  Sender: FDA-Public Use
  Company Number: US-PFIZER INC-2014174205

PATIENT
  Sex: Female

DRUGS (2)
  1. EFFEXOR XR [Suspect]
     Dosage: 37.5 MG, DAILY
  2. FETZIMA [Suspect]
     Dosage: 40 MG, DAILY

REACTIONS (2)
  - Palpitations [Unknown]
  - Nausea [Unknown]
